FAERS Safety Report 4820830-1 (Version None)
Quarter: 2005Q4

REPORT INFORMATION
  Report Type: 
  Country: None (occurrence: None)
  Receive Date: 20051103
  Receipt Date: 20051024
  Transmission Date: 20060501
  Serious: Yes (Death, Hospitalization, Other)
  Sender: FDA-Public Use
  Company Number: 2005125268

PATIENT
  Age: 80 Year
  Sex: Female

DRUGS (8)
  1. MACUGEN [Suspect]
     Indication: CHOROIDAL NEOVASCULARISATION
     Dosage: (1 IN 6 WK), INTRAVENOUS
     Route: 042
     Dates: start: 20050314
  2. MACUGEN [Suspect]
     Indication: MACULAR DEGENERATION
     Dosage: (1 IN 6 WK), INTRAVENOUS
     Route: 042
     Dates: start: 20050314
  3. PROCARDIA [Concomitant]
  4. DETROL [Concomitant]
  5. HYDROCHLOROTHIAZIDE [Concomitant]
  6. DETROL [Concomitant]
  7. NEXIUM [Concomitant]
  8. CARAFATE [Concomitant]

REACTIONS (9)
  - CARDIAC FAILURE CONGESTIVE [None]
  - CHOROIDAL HAEMORRHAGE [None]
  - CONDITION AGGRAVATED [None]
  - LOWER LIMB FRACTURE [None]
  - MACULAR DEGENERATION [None]
  - MULTIPLE MYELOMA [None]
  - PATHOLOGICAL FRACTURE [None]
  - POST PROCEDURAL COMPLICATION [None]
  - VISUAL ACUITY REDUCED [None]
